FAERS Safety Report 13040480 (Version 1)
Quarter: 2016Q4

REPORT INFORMATION
  Report Type: Spontaneous
  Country: US (occurrence: US)
  Receive Date: 20161219
  Receipt Date: 20161219
  Transmission Date: 20170207
  Serious: Yes (Other)
  Sender: FDA-Public Use
  Company Number: US-SA-2016SA200922

PATIENT
  Sex: Male

DRUGS (9)
  1. SOLOSTAR [Concomitant]
     Active Substance: DEVICE
     Dates: start: 20161031
  2. ASPIRIN. [Concomitant]
     Active Substance: ASPIRIN
  3. VICTOZA [Concomitant]
     Active Substance: LIRAGLUTIDE
  4. SOLOSTAR [Concomitant]
     Active Substance: DEVICE
     Dates: start: 201609
  5. SOLOSTAR [Concomitant]
     Active Substance: DEVICE
  6. TOUJEO [Concomitant]
     Active Substance: INSULIN GLARGINE
     Dosage: DOSE:10 UNIT(S)
     Dates: start: 201609
  7. TOUJEO [Concomitant]
     Active Substance: INSULIN GLARGINE
     Dosage: DUE TO BLOOD SUGAR STILL TOO HIGH DOSE:30 UNIT(S)
     Dates: start: 20161031
  8. PLAVIX [Suspect]
     Active Substance: CLOPIDOGREL BISULFATE
     Route: 065
  9. TOUJEO [Concomitant]
     Active Substance: INSULIN GLARGINE
     Dosage: DOSE:20 UNIT(S)

REACTIONS (6)
  - Nausea [Unknown]
  - Prostatic specific antigen increased [Unknown]
  - Cerebrovascular accident [Unknown]
  - Asthenia [Unknown]
  - Blood glucose abnormal [Unknown]
  - Vertigo [Unknown]

NARRATIVE: CASE EVENT DATE: 2013
